FAERS Safety Report 16202238 (Version 3)
Quarter: 2019Q4

REPORT INFORMATION
  Report Type: Report from Study
  Country: None (occurrence: US)
  Receive Date: 20190416
  Receipt Date: 20191128
  Transmission Date: 20200122
  Serious: Yes (Hospitalization, Other)
  Sender: FDA-Public Use
  Company Number: US-ABBVIE-19K-163-2740385-00

PATIENT
  Age: 60 Year
  Sex: Male

DRUGS (1)
  1. HUMIRA [Suspect]
     Active Substance: ADALIMUMAB
     Indication: RHEUMATOID ARTHRITIS
     Dosage: HUMIRA CITRATE FREE.
     Route: 058

REACTIONS (8)
  - Clavicle fracture [Recovering/Resolving]
  - Rib fracture [Recovering/Resolving]
  - Fall [Unknown]
  - Joint instability [Unknown]
  - Product dispensing error [Unknown]
  - Pain [Unknown]
  - Upper limb fracture [Recovering/Resolving]
  - Peripheral swelling [Unknown]

NARRATIVE: CASE EVENT DATE: 201903
